FAERS Safety Report 7196992-0 (Version None)
Quarter: 2010Q4

REPORT INFORMATION
  Report Type: 
  Country: None (occurrence: None)
  Receive Date: 20101224
  Receipt Date: 20101216
  Transmission Date: 20110411
  Serious: Yes (Hospitalization)
  Sender: FDA-Public Use
  Company Number: RS-PFIZER INC-2010174493

PATIENT
  Age: 66 Year
  Sex: Female
  Weight: 83 kg

DRUGS (3)
  1. SULFASALAZINE [Suspect]
     Indication: COLITIS ULCERATIVE
     Dosage: 500 MG, 3X/DAY
     Route: 048
     Dates: start: 20101018, end: 20101119
  2. MONOPRIL-HCT [Concomitant]
     Dosage: UNK
     Route: 048
  3. FAMOTIDIN [Concomitant]
     Dosage: UNK
     Route: 048

REACTIONS (2)
  - ERYTHEMA [None]
  - PRURITUS [None]
